FAERS Safety Report 7596632-2 (Version None)
Quarter: 2011Q3

REPORT INFORMATION
  Report Type: 
  Country: None (occurrence: None)
  Receive Date: 20110708
  Receipt Date: 20110704
  Transmission Date: 20111222
  Serious: Yes (Death)
  Sender: FDA-Public Use
  Company Number: BE-JNJFOC-20110700333

PATIENT
  Sex: Male

DRUGS (1)
  1. INVEGA [Suspect]
     Indication: ABNORMAL BEHAVIOUR
     Route: 048

REACTIONS (2)
  - OFF LABEL USE [None]
  - DEATH [None]
